FAERS Safety Report 25248499 (Version 3)
Quarter: 2025Q3

REPORT INFORMATION
  Report Type: Report from Study
  Country: US (occurrence: US)
  Receive Date: 20250429
  Receipt Date: 20250722
  Transmission Date: 20251021
  Serious: Yes (Hospitalization, Other)
  Sender: ROCHE
  Company Number: US-ROCHE-10000268593

PATIENT
  Age: 92 Year
  Sex: Female

DRUGS (2)
  1. ACTEMRA [Suspect]
     Active Substance: TOCILIZUMAB
     Indication: Giant cell arteritis
     Dosage: INJECT THE CONTENTS OF ONE DEVICE UNDER THE SKIN EVERY TWO WEEKS (EVERY 14 DAYS)
     Route: 058
  2. ACTEMRA [Suspect]
     Active Substance: TOCILIZUMAB

REACTIONS (4)
  - Cardiac failure acute [Unknown]
  - Mycoplasma infection [Unknown]
  - Urinary tract infection [Unknown]
  - Cardiac failure [Unknown]
